FAERS Safety Report 12208203 (Version 1)
Quarter: 2016Q1

REPORT INFORMATION
  Report Type: Spontaneous
  Country: DE (occurrence: DE)
  Receive Date: 20160324
  Receipt Date: 20160324
  Transmission Date: 20160526
  Serious: Yes (Other)
  Sender: FDA-Public Use
  Company Number: PHHY2016DE025872

PATIENT
  Sex: Male

DRUGS (4)
  1. SANDIMMUN OPTORAL [Suspect]
     Active Substance: CYCLOSPORINE
     Dosage: 150 MG, BID
     Route: 065
     Dates: start: 201505
  2. MYFORTIC [Suspect]
     Active Substance: MYCOPHENOLATE SODIUM
     Indication: STEM CELL TRANSPLANT
     Dosage: UNK
     Route: 065
     Dates: start: 201405
  3. MYFORTIC [Suspect]
     Active Substance: MYCOPHENOLATE SODIUM
     Dosage: 360 MG, UNK
     Route: 065
     Dates: start: 201505
  4. SANDIMMUN OPTORAL [Suspect]
     Active Substance: CYCLOSPORINE
     Indication: STEM CELL TRANSPLANT
     Dosage: UNK
     Route: 065
     Dates: start: 201312, end: 201405

REACTIONS (6)
  - Graft versus host disease [Recovering/Resolving]
  - Condition aggravated [Recovering/Resolving]
  - Eye injury [Recovering/Resolving]
  - Pulmonary fibrosis [Recovering/Resolving]
  - Graft versus host disease in skin [Unknown]
  - Product use issue [Unknown]

NARRATIVE: CASE EVENT DATE: 201405
